FAERS Safety Report 7479731-5 (Version None)
Quarter: 2011Q2

REPORT INFORMATION
  Report Type: 
  Country: None (occurrence: None)
  Receive Date: 20110513
  Receipt Date: 20110504
  Transmission Date: 20111010
  Serious: Yes (Hospitalization, Other)
  Sender: FDA-Public Use
  Company Number: US-ASTRAZENECA-2011SE24127

PATIENT
  Age: 89 Year
  Sex: Female

DRUGS (4)
  1. PLAVIX [Concomitant]
  2. NEXIUM [Suspect]
     Route: 048
  3. PREVACID [Concomitant]
  4. PRILOSEC [Suspect]
     Route: 048

REACTIONS (6)
  - SCOLIOSIS [None]
  - THYROID DISORDER [None]
  - DRUG INEFFECTIVE [None]
  - MYOCARDIAL INFARCTION [None]
  - CARDIAC OPERATION [None]
  - GASTROOESOPHAGEAL REFLUX DISEASE [None]
